FAERS Safety Report 10442403 (Version 2)
Quarter: 2014Q4

REPORT INFORMATION
  Report Type: Spontaneous
  Country: US (occurrence: US)
  Receive Date: 20140909
  Receipt Date: 20141028
  Transmission Date: 20150528
  Serious: Yes (Other)
  Sender: FDA-Public Use
  Company Number: US-BAYER-2014-129669

PATIENT
  Age: 23 Year
  Sex: Female
  Weight: 50.79 kg

DRUGS (2)
  1. TRIAZOLAM. [Concomitant]
     Active Substance: TRIAZOLAM
     Indication: SLEEP DISORDER
  2. MIRENA [Suspect]
     Active Substance: LEVONORGESTREL
     Indication: CONTRACEPTION
     Dosage: 20 MCG/24HR, CONT
     Route: 015
     Dates: start: 20080828, end: 200908

REACTIONS (14)
  - Premature separation of placenta [None]
  - Genital haemorrhage [None]
  - Abdominal pain upper [None]
  - Device expulsion [None]
  - Device issue [None]
  - Weight decreased [None]
  - Pain [None]
  - Nausea [None]
  - Premature baby [None]
  - Pyrexia [None]
  - Chills [None]
  - Injury [None]
  - Sleep disorder [None]
  - Device defective [None]

NARRATIVE: CASE EVENT DATE: 200905
